FAERS Safety Report 6195364-5 (Version None)
Quarter: 2009Q2

REPORT INFORMATION
  Report Type: 
  Country: None (occurrence: None)
  Receive Date: 20090515
  Receipt Date: 20090508
  Transmission Date: 20091009
  Serious: Yes (Death)
  Sender: FDA-Public Use
  Company Number: 2009004214

PATIENT
  Age: 34 Year
  Sex: Male

DRUGS (1)
  1. ACTIQ [Suspect]
     Indication: CANCER PAIN
     Dosage: ^AS DIRECTED^ (800 MCG), BU
     Route: 002

REACTIONS (2)
  - MALIGNANT NEOPLASM PROGRESSION [None]
  - PANCREATIC CARCINOMA METASTATIC [None]
